FAERS Safety Report 7381689-4 (Version None)
Quarter: 2011Q1

REPORT INFORMATION
  Report Type: 
  Country: None (occurrence: None)
  Receive Date: 20110329
  Receipt Date: 20110322
  Transmission Date: 20110831
  Serious: Yes (Hospitalization)
  Sender: FDA-Public Use
  Company Number: US-US-EMD SERONO, INC.-231645J10USA

PATIENT
  Sex: Female
  Weight: 94 kg

DRUGS (6)
  1. AMANTADINE [Concomitant]
     Dates: start: 20100101, end: 20100601
  2. PREDNISONE [Suspect]
  3. AMANTADINE [Concomitant]
     Indication: FATIGUE
     Dates: end: 20100130
  4. UNSPECIFIED BLOOD PRESSURE MEDICATION [Concomitant]
     Indication: HYPERTENSION
     Dates: end: 20100130
  5. REBIF [Suspect]
     Route: 058
     Dates: start: 20100419
  6. REBIF [Suspect]
     Indication: MULTIPLE SCLEROSIS
     Route: 058
     Dates: start: 20031122, end: 20100121

REACTIONS (10)
  - EPISTAXIS [None]
  - POLLAKIURIA [None]
  - DEPRESSION [None]
  - HEADACHE [None]
  - PULMONARY THROMBOSIS [None]
  - DYSPEPSIA [None]
  - MULTIPLE SCLEROSIS RELAPSE [None]
  - BLADDER CYST [None]
  - URINARY INCONTINENCE [None]
  - THROMBOSIS [None]
